FAERS Safety Report 11175150 (Version 3)
Quarter: 2015Q4

REPORT INFORMATION
  Report Type: Report from Study
  Country: DE (occurrence: DE)
  Receive Date: 20150609
  Receipt Date: 20151125
  Transmission Date: 20160304
  Serious: Yes (Other)
  Sender: FDA-Public Use
  Company Number: DE-ROCHE-1588044

PATIENT
  Age: 46 Year
  Sex: Female
  Weight: 57 kg

DRUGS (10)
  1. PACLITAXEL. [Suspect]
     Active Substance: PACLITAXEL
     Indication: HER-2 POSITIVE BREAST CANCER
     Dosage: DATE OF LAST DOSE PRIOR TO SAE 23/APR/2015
     Route: 065
     Dates: start: 20150129, end: 20150430
  2. PERTUZUMAB [Suspect]
     Active Substance: PERTUZUMAB
     Dosage: MAINTAINANCE DOSE
     Route: 042
     Dates: end: 20150514
  3. TRASTUZUMAB [Suspect]
     Active Substance: TRASTUZUMAB
     Indication: HER-2 POSITIVE BREAST CANCER
     Dosage: LOADING DOSE, DATE OF LAST DOSE PRIOR TO SAE 23/APR/2015
     Route: 042
     Dates: start: 20150129, end: 20150129
  4. PERTUZUMAB [Suspect]
     Active Substance: PERTUZUMAB
     Dosage: DATE OF LAST DOSE PRIOR TO SERIOUS ADVERSE EVENT: 23/APR/2015
     Route: 042
     Dates: start: 20150520
  5. TRASTUZUMAB [Suspect]
     Active Substance: TRASTUZUMAB
     Route: 042
     Dates: start: 20150520
  6. PACLITAXEL. [Suspect]
     Active Substance: PACLITAXEL
     Route: 065
     Dates: start: 20150513
  7. PERTUZUMAB [Suspect]
     Active Substance: PERTUZUMAB
     Indication: HER-2 POSITIVE BREAST CANCER
     Dosage: LOADING DOSE
     Route: 042
     Dates: start: 20150129, end: 20150129
  8. TRASTUZUMAB [Suspect]
     Active Substance: TRASTUZUMAB
     Dosage: MAINTAINANCE DOSE
     Route: 042
     Dates: end: 20150514
  9. DOXORUBICIN [Suspect]
     Active Substance: DOXORUBICIN
     Dosage: DATE OF LAST DOSE PRIOR TO SAE 23/APR/2015.
     Route: 042
     Dates: start: 20150513
  10. DOXORUBICIN [Suspect]
     Active Substance: DOXORUBICIN
     Indication: HER-2 POSITIVE BREAST CANCER
     Route: 042
     Dates: start: 20150129, end: 20150430

REACTIONS (1)
  - Pneumonitis [Recovered/Resolved]

NARRATIVE: CASE EVENT DATE: 20150504
